FAERS Safety Report 19900701 (Version 1)
Quarter: 2021Q3

REPORT INFORMATION
  Report Type: Spontaneous
  Country: IT (occurrence: IT)
  Receive Date: 20210930
  Receipt Date: 20210930
  Transmission Date: 20211014
  Serious: Yes (Hospitalization, Other)
  Sender: FDA-Public Use
  Company Number: IT-ACCORD-239945

PATIENT
  Age: 67 Year
  Sex: Male

DRUGS (4)
  1. TIGECYCLINE. [Suspect]
     Active Substance: TIGECYCLINE
     Indication: KLEBSIELLA INFECTION
  2. COLISTIN [Suspect]
     Active Substance: COLISTIN
     Indication: KLEBSIELLA INFECTION
  3. GENTAMICIN. [Suspect]
     Active Substance: GENTAMICIN
     Indication: KLEBSIELLA INFECTION
  4. ABCIXIMAB [Concomitant]
     Active Substance: ABCIXIMAB
     Dosage: E.V. INFUSION

REACTIONS (1)
  - Chronic kidney disease [Unknown]
